FAERS Safety Report 6197881-0 (Version None)
Quarter: 2009Q2

REPORT INFORMATION
  Report Type: 
  Country: None (occurrence: None)
  Receive Date: 20090521
  Receipt Date: 20090515
  Transmission Date: 20091009
  Serious: Yes (Death)
  Sender: FDA-Public Use
  Company Number: A0704416A

PATIENT
  Age: 57 Year
  Sex: Male
  Weight: 115.9 kg

DRUGS (10)
  1. AVANDIA [Suspect]
     Dosage: 4MG TWICE PER DAY
     Route: 048
     Dates: start: 20011130, end: 20060130
  2. CELEXA [Concomitant]
     Dates: start: 20020219, end: 20030128
  3. GLUCOPHAGE [Concomitant]
     Dates: start: 20011130, end: 20011227
  4. STARLIX [Concomitant]
     Dosage: 120MG THREE TIMES PER DAY
     Dates: start: 20050419, end: 20060130
  5. NASONEX [Concomitant]
     Dates: start: 20020529
  6. FLONASE [Concomitant]
     Dates: start: 20020327
  7. RYNATAN [Concomitant]
     Dates: start: 20020227
  8. LISINOPRIL [Concomitant]
     Dates: start: 20000224, end: 20050725
  9. TIZANIDINE HCL [Concomitant]
  10. OXYCODONE HCL [Concomitant]

REACTIONS (10)
  - ANXIETY [None]
  - CARDIAC ARREST [None]
  - CARDIAC FAILURE CONGESTIVE [None]
  - HEART INJURY [None]
  - HYPERTENSIVE HEART DISEASE [None]
  - MYOCARDIAL INFARCTION [None]
  - MYOCARDIAL ISCHAEMIA [None]
  - PAIN [None]
  - SUDDEN CARDIAC DEATH [None]
  - TRANSIENT ISCHAEMIC ATTACK [None]
